FAERS Safety Report 8003185-3 (Version None)
Quarter: 2011Q4

REPORT INFORMATION
  Report Type: 
  Country: None (occurrence: None)
  Receive Date: 20111220
  Receipt Date: 20111209
  Transmission Date: 20120403
  Serious: Yes (Life-Threatening)
  Sender: FDA-Public Use
  Company Number: TCI2011A04403

PATIENT
  Age: 75 Year
  Sex: Male

DRUGS (5)
  1. HUMULIN N [Concomitant]
  2. ACTOS [Suspect]
     Indication: DIABETES MELLITUS
     Dosage: 15 MG (15 MG, 1 IN 1 D)
     Route: 048
     Dates: start: 20090914
  3. ADALAT [Concomitant]
  4. TRICHLORMETHIAZIDE [Concomitant]
  5. MICARDIS [Concomitant]

REACTIONS (1)
  - BLADDER CANCER [None]
